FAERS Safety Report 8763609 (Version 2)
Quarter: 2012Q4

REPORT INFORMATION
  Report Type: Report from Study
  Country: JP (occurrence: JP)
  Receive Date: 20120831
  Receipt Date: 20121115
  Transmission Date: 20130627
  Serious: Yes (Hospitalization, Other)
  Sender: FDA-Public Use
  Company Number: JP-009507513-2012SP020531

PATIENT
  Age: 63 Year
  Sex: Male
  Weight: 55 kg

DRUGS (12)
  1. PEGINTERFERON ALFA-2B [Suspect]
     Indication: HEPATITIS C
     Dosage: 1.5 Microgram per kilogram, qw
     Route: 058
     Dates: start: 20120224, end: 20120322
  2. PEGINTERFERON ALFA-2B [Suspect]
     Dosage: 0.72 Microgram per kilogram, qw
     Route: 058
     Dates: start: 20120323, end: 20120329
  3. REBETOL [Suspect]
     Indication: HEPATITIS C
     Dosage: 600 mg, qd
     Route: 048
     Dates: start: 20120224, end: 20120315
  4. REBETOL [Suspect]
     Dosage: 400 mg, qd
     Route: 048
     Dates: start: 20120316, end: 20120322
  5. REBETOL [Suspect]
     Dosage: 200 mg, qd
     Route: 048
     Dates: start: 20120323, end: 20120329
  6. TELAVIC [Suspect]
     Indication: HEPATITIS C
     Dosage: 2250 mg, qd
     Route: 048
     Dates: start: 20120224, end: 20120322
  7. TELAVIC [Suspect]
     Dosage: 1500 mg, qd
     Route: 048
     Dates: start: 20120323, end: 20120329
  8. CELESTAMINE [Concomitant]
     Indication: RASH
     Dosage: 2 DF, qd
     Dates: start: 20120229, end: 20120302
  9. CELESTODERM V [Concomitant]
     Indication: RASH
     Dosage: UNK UNK, prn
     Dates: start: 20120228, end: 20120308
  10. CALONAL [Concomitant]
     Indication: PROPHYLAXIS
     Dosage: 1200 mg, qd, Formulation: POR
     Route: 048
     Dates: start: 20120229, end: 20120302
  11. LENDORMIN [Concomitant]
     Indication: INSOMNIA
     Dosage: 0.25 mg, qd
     Route: 048
     Dates: start: 20120309, end: 20120403
  12. RINDERON-VG [Concomitant]
     Indication: RASH
     Dosage: UNK, As needed, qd
     Dates: start: 20120229, end: 20120308

REACTIONS (5)
  - Malaise [Not Recovered/Not Resolved]
  - Nausea [Recovered/Resolved]
  - Decreased appetite [Recovered/Resolved]
  - Anaemia [Recovered/Resolved]
  - Depression [Recovered/Resolved]
